FAERS Safety Report 19349808 (Version 1)
Quarter: 2021Q2

REPORT INFORMATION
  Report Type: Spontaneous
  Country: US (occurrence: US)
  Receive Date: 20210531
  Receipt Date: 20210531
  Transmission Date: 20210717
  Serious: No
  Sender: FDA-Public Use
  Company Number: US-TEVA-2021-US-1916748

PATIENT

DRUGS (1)
  1. AJOVY [Suspect]
     Active Substance: FREMANEZUMAB-VFRM
     Dosage: AUTOINJECTOR 225 MG/1.5 ML
     Route: 065

REACTIONS (3)
  - Injection site injury [Unknown]
  - Injection site extravasation [Unknown]
  - Incorrect dose administered by device [Unknown]
